FAERS Safety Report 15097877 (Version 1)
Quarter: 2018Q3

REPORT INFORMATION
  Report Type: Spontaneous
  Country: TW (occurrence: TW)
  Receive Date: 20180702
  Receipt Date: 20180702
  Transmission Date: 20181010
  Serious: Yes (Death)
  Sender: FDA-Public Use
  Company Number: TW-BIOCRYST PHARMACEUTICALS, INC.-2018BCR00225

PATIENT
  Age: 71 Year
  Sex: Male

DRUGS (5)
  1. RAPIACTA [Suspect]
     Active Substance: PERAMIVIR
     Indication: VIRAL INFECTION
     Dosage: 300 MG, UNK
     Route: 042
     Dates: start: 20180605, end: 20180605
  2. TIGECYCLINE. [Concomitant]
     Active Substance: TIGECYCLINE
  3. AUGMENTIN [Concomitant]
     Active Substance: AMOXICILLIN\CLAVULANATE POTASSIUM
  4. EXPECTORANT AGENT [Concomitant]
  5. PANADOL [Concomitant]
     Active Substance: ACETAMINOPHEN

REACTIONS (1)
  - Pneumonia [Fatal]

NARRATIVE: CASE EVENT DATE: 201806
